FAERS Safety Report 23891882 (Version 1)
Quarter: 2024Q2

REPORT INFORMATION
  Report Type: Report from Study
  Country: US (occurrence: US)
  Receive Date: 20240524
  Receipt Date: 20240524
  Transmission Date: 20240716
  Serious: Yes (Hospitalization, Other)
  Sender: FDA-Public Use
  Company Number: US-SA-SAC20230201000720

PATIENT
  Age: 74 Year
  Sex: Female

DRUGS (2)
  1. AGALSIDASE BETA [Suspect]
     Active Substance: AGALSIDASE BETA
     Indication: Fabry^s disease
     Dosage: 90 (UNITS UNSPECIFIED), QOW
     Route: 042
     Dates: start: 20070531
  2. AGALSIDASE BETA [Suspect]
     Active Substance: AGALSIDASE BETA
     Dosage: 90 (UNITS UNSPECIFIED), QOW
     Route: 042

REACTIONS (6)
  - Breast cancer female [Not Recovered/Not Resolved]
  - Renal failure [Not Recovered/Not Resolved]
  - Cardiac disorder [Unknown]
  - Foaming at mouth [Unknown]
  - Vomiting [Unknown]
  - Post procedural drainage [Not Recovered/Not Resolved]

NARRATIVE: CASE EVENT DATE: 20220101
